FAERS Safety Report 19055578 (Version 1)
Quarter: 2021Q1

REPORT INFORMATION
  Report Type: Spontaneous
  Country: US (occurrence: US)
  Receive Date: 20210324
  Receipt Date: 20210324
  Transmission Date: 20210420
  Serious: No
  Sender: FDA-Public Use
  Company Number: None

PATIENT
  Age: 92 Year
  Sex: Female
  Weight: 48.08 kg

DRUGS (2)
  1. METHOTREXATE 2.5 MG TABLET, 2.5 MG [Suspect]
     Active Substance: METHOTREXATE
     Indication: RHEUMATOID ARTHRITIS
  2. METHOTREXATE 2.5 MG TABLET, 2.5 MG [Suspect]
     Active Substance: METHOTREXATE
     Indication: OSTEOPOROSIS
     Route: 048
     Dates: start: 202010

REACTIONS (1)
  - Urinary tract infection [None]
